FAERS Safety Report 25010702 (Version 2)
Quarter: 2025Q4

REPORT INFORMATION
  Report Type: Spontaneous
  Country: EU (occurrence: EU)
  Receive Date: 20250225
  Receipt Date: 20251107
  Transmission Date: 20260118
  Serious: Yes (Other)
  Sender: VERTEX
  Company Number: None

PATIENT
  Age: 35 Year
  Sex: Female
  Weight: 51 kg

DRUGS (9)
  1. ELEXACAFTOR\IVACAFTOR\TEZACAFTOR [Suspect]
     Active Substance: ELEXACAFTOR\IVACAFTOR\TEZACAFTOR
     Indication: Cystic fibrosis
     Dosage: 2 DOSAGE FORM, QD
     Route: 048
     Dates: start: 202109
  2. KALYDECO [Suspect]
     Active Substance: IVACAFTOR
     Indication: Cystic fibrosis
     Dosage: 150 MILLIGRAM, QD
     Route: 048
     Dates: start: 202109
  3. TINZAPARIN SODIUM [Suspect]
     Active Substance: TINZAPARIN SODIUM
     Indication: Thrombosis prophylaxis
     Dosage: 12000 INTERNATIONAL UNIT, 1 PER DAY
     Route: 065
  4. PANCRELIPASE [Suspect]
     Active Substance: PANCRELIPASE
     Indication: Product used for unknown indication
     Route: 065
  5. PANTOPRAZOLE [Suspect]
     Active Substance: PANTOPRAZOLE
     Indication: Product used for unknown indication
     Dosage: 40 MILLIGRAM, 1 PER DAY
     Route: 065
  6. POTASSIUM CHLORIDE [Suspect]
     Active Substance: POTASSIUM CHLORIDE
     Indication: Hypokalaemia
     Dosage: 1200 MILLIGRAM, 1 DAY
     Route: 065
  7. URSODIOL [Suspect]
     Active Substance: URSODIOL
     Indication: Hepatobiliary disease
     Dosage: 1000 MILLIGRAM, 1 PER DAY
     Route: 065
  8. CALCIUM CARBONATE\CHOLECALCIFEROL [Suspect]
     Active Substance: CALCIUM CARBONATE\CHOLECALCIFEROL
     Indication: Mineral supplementation
     Dosage: 1 DOSAGE FORM (500 MG/ 400 IU)
     Route: 048
  9. FOLIC ACID [Suspect]
     Active Substance: FOLIC ACID
     Indication: Vitamin supplementation
     Dosage: 0.4 MILLIGRAM, QD
     Route: 065

REACTIONS (2)
  - Abortion spontaneous [Recovered/Resolved with Sequelae]
  - Exposure during pregnancy [Unknown]

NARRATIVE: CASE EVENT DATE: 20240922
